FAERS Safety Report 6436905-X (Version None)
Quarter: 2009Q4

REPORT INFORMATION
  Report Type: 
  Country: None (occurrence: None)
  Receive Date: 20091109
  Receipt Date: 20091026
  Transmission Date: 20100525
  Serious: Yes (Other)
  Sender: FDA-Public Use
  Company Number: MC200900394

PATIENT

DRUGS (1)
  1. CLEVIPREX [Suspect]
     Indication: BLOOD PRESSURE INCREASED
     Dosage: INTRAVENOUS
     Route: 042
     Dates: start: 20091001, end: 20091001

REACTIONS (2)
  - BLOOD PRESSURE DECREASED [None]
  - OXYGEN SATURATION DECREASED [None]
